FAERS Safety Report 12570243 (Version 1)
Quarter: 2016Q3

REPORT INFORMATION
  Report Type: Spontaneous
  Country: US (occurrence: None)
  Receive Date: 20160718
  Receipt Date: 20160718
  Transmission Date: 20161109
  Serious: No
  Sender: FDA-Public Use
  Company Number: None

PATIENT
  Sex: Male

DRUGS (3)
  1. METFORMIN [Suspect]
     Active Substance: METFORMIN HYDROCHLORIDE
  2. INVOKANA [Suspect]
     Active Substance: CANAGLIFLOZIN
  3. TOUJEO [Suspect]
     Active Substance: INSULIN GLARGINE

REACTIONS (7)
  - Pollakiuria [None]
  - Dysgeusia [None]
  - Thirst [None]
  - Temperature intolerance [None]
  - Glycosylated haemoglobin increased [None]
  - Appetite disorder [None]
  - Weight decreased [None]
